FAERS Safety Report 23949855 (Version 1)
Quarter: 2024Q2

REPORT INFORMATION
  Report Type: Other
  Country: US (occurrence: None)
  Receive Date: 20240607
  Receipt Date: 20240607
  Transmission Date: 20240716
  Serious: Yes (Other)
  Sender: FDA-Public Use
  Company Number: US-ROCHE-3575689

PATIENT
  Age: 55 Year
  Sex: Female
  Weight: 69.008 kg

DRUGS (15)
  1. OCREVUS [Suspect]
     Active Substance: OCRELIZUMAB
     Indication: Primary progressive multiple sclerosis
     Dosage: 30 MG/ML:
     Route: 042
     Dates: start: 2017
  2. OCREVUS [Suspect]
     Active Substance: OCRELIZUMAB
     Dosage: SUBSEQUENT DOSES: 15/SEP/2022, 29/MAR/2023 04/MAR/2024, 02/OCT/2023
     Route: 042
     Dates: start: 20220818
  3. OCREVUS [Suspect]
     Active Substance: OCRELIZUMAB
     Route: 042
     Dates: start: 20220915
  4. SOLU-MEDROL [Concomitant]
     Active Substance: METHYLPREDNISOLONE SODIUM SUCCINATE
     Route: 042
  5. TEMAZEPAM [Concomitant]
     Active Substance: TEMAZEPAM
  6. AMOXICILLIN [Concomitant]
     Active Substance: AMOXICILLIN
  7. ASCORBIC ACID [Concomitant]
     Active Substance: ASCORBIC ACID
  8. CEPHALEXIN [Concomitant]
     Active Substance: CEPHALEXIN
  9. FLUCONAZOLE [Concomitant]
     Active Substance: FLUCONAZOLE
  10. FLUXETIN [Concomitant]
  11. LISINOPRIL [Concomitant]
     Active Substance: LISINOPRIL
  12. MELOXICAM [Concomitant]
     Active Substance: MELOXICAM
  13. RELPAX [Concomitant]
     Active Substance: ELETRIPTAN HYDROBROMIDE
  14. ZYRTEC [Concomitant]
     Active Substance: CETIRIZINE HYDROCHLORIDE
  15. FAMOTIDINE [Concomitant]
     Active Substance: FAMOTIDINE

REACTIONS (16)
  - Hemiplegia [Unknown]
  - Skin cancer [Unknown]
  - Vitamin D deficiency [Unknown]
  - Pain [Unknown]
  - Arthralgia [Unknown]
  - Spinal osteoarthritis [Unknown]
  - Intervertebral disc degeneration [Unknown]
  - Neck pain [Unknown]
  - Back pain [Unknown]
  - Muscle spasms [Unknown]
  - Vertebral osteophyte [Unknown]
  - Dyspepsia [Unknown]
  - COVID-19 [Unknown]
  - Sacroiliitis [Unknown]
  - Urinary tract infection [Unknown]
  - Bacterial vaginosis [Unknown]

NARRATIVE: CASE EVENT DATE: 20201012
